FAERS Safety Report 20520238 (Version 1)
Quarter: 2022Q1

REPORT INFORMATION
  Report Type: Spontaneous
  Country: GB (occurrence: GB)
  Receive Date: 20220225
  Receipt Date: 20220225
  Transmission Date: 20220424
  Serious: Yes (Hospitalization)
  Sender: FDA-Public Use
  Company Number: None

PATIENT
  Age: 68 Year
  Sex: Male
  Weight: 83.2 kg

DRUGS (12)
  1. EDOXABAN [Suspect]
     Active Substance: EDOXABAN
     Indication: Atrial fibrillation
     Dosage: 60 MG, QD
     Route: 048
  2. ASPIRIN [Concomitant]
     Active Substance: ASPIRIN
     Indication: Ill-defined disorder
     Dosage: UNK
  3. ATORVASTATIN [Concomitant]
     Active Substance: ATORVASTATIN
     Indication: Ill-defined disorder
     Dosage: UNK
  4. CARBOCYSTEINE [Concomitant]
     Active Substance: CARBOCYSTEINE
     Indication: Ill-defined disorder
     Dosage: UNK
  5. DIGOXIN [Concomitant]
     Active Substance: DIGOXIN
     Indication: Ill-defined disorder
     Dosage: UNK
  6. DOCUSATE SODIUM [Concomitant]
     Active Substance: DOCUSATE SODIUM
     Indication: Ill-defined disorder
     Dosage: UNK
  7. ESCITALOPRAM [Concomitant]
     Active Substance: ESCITALOPRAM OXALATE
     Indication: Ill-defined disorder
     Dosage: UNK
  8. GLICLAZIDE [Concomitant]
     Active Substance: GLICLAZIDE
     Indication: Ill-defined disorder
     Dosage: UNK
  9. LANSOPRAZOLE [Concomitant]
     Active Substance: LANSOPRAZOLE
     Indication: Ill-defined disorder
     Dosage: UNK
  10. METFORMIN HYDROCHLORIDE [Concomitant]
     Active Substance: METFORMIN HYDROCHLORIDE
     Indication: Ill-defined disorder
     Dosage: UNK
  11. OXYCODONE [Concomitant]
     Active Substance: OXYCODONE
     Indication: Ill-defined disorder
     Dosage: UNK
  12. ALBUTEROL [Concomitant]
     Active Substance: ALBUTEROL
     Indication: Ill-defined disorder
     Dosage: UNK

REACTIONS (1)
  - Pulmonary embolism [Recovering/Resolving]
